FAERS Safety Report 9720977 (Version 4)
Quarter: 2015Q2

REPORT INFORMATION
  Report Type: Spontaneous
  Country: US (occurrence: US)
  Receive Date: 20131129
  Receipt Date: 20150520
  Transmission Date: 20150821
  Serious: Yes (Hospitalization, Other)
  Sender: FDA-Public Use
  Company Number: US-SA-2013SA123685

PATIENT
  Age: 68 Year
  Sex: Male

DRUGS (12)
  1. MULTAQ [Suspect]
     Active Substance: DRONEDARONE
     Indication: ARRHYTHMIA
     Route: 048
     Dates: start: 20131101
  2. PROTONIX [Suspect]
     Active Substance: PANTOPRAZOLE SODIUM
     Indication: ABDOMINAL DISCOMFORT
     Route: 065
     Dates: start: 20131125
  3. COREG [Suspect]
     Active Substance: CARVEDILOL
     Indication: ATRIAL FIBRILLATION
     Route: 065
     Dates: start: 20131101
  4. NORVASC [Suspect]
     Active Substance: AMLODIPINE BESYLATE
     Indication: ATRIAL FIBRILLATION
     Route: 065
  5. MULTAQ [Suspect]
     Active Substance: DRONEDARONE
     Indication: ARRHYTHMIA
     Route: 048
     Dates: start: 20131101
  6. TRICOR [Suspect]
     Active Substance: FENOFIBRATE
     Route: 065
  7. MULTAQ [Suspect]
     Active Substance: DRONEDARONE
     Indication: ATRIAL FIBRILLATION
     Route: 048
     Dates: start: 20131101
  8. FENOFIBRATE. [Concomitant]
     Active Substance: FENOFIBRATE
  9. MULTAQ [Suspect]
     Active Substance: DRONEDARONE
     Indication: ATRIAL FIBRILLATION
     Route: 048
     Dates: start: 20131101
  10. MULTAQ [Suspect]
     Active Substance: DRONEDARONE
     Indication: ARRHYTHMIA
     Route: 048
     Dates: start: 20131101
  11. MULTAQ [Suspect]
     Active Substance: DRONEDARONE
     Indication: ATRIAL FIBRILLATION
     Route: 048
     Dates: start: 20131101
  12. DILTIAZEM [Concomitant]
     Active Substance: DILTIAZEM
     Dates: end: 2015

REACTIONS (18)
  - Depressed level of consciousness [Not Recovered/Not Resolved]
  - Chest pain [Not Recovered/Not Resolved]
  - Abdominal discomfort [Recovering/Resolving]
  - Muscular weakness [Not Recovered/Not Resolved]
  - Confusional state [Not Recovered/Not Resolved]
  - Atrial fibrillation [Recovered/Resolved]
  - Presyncope [Not Recovered/Not Resolved]
  - Speech disorder [Not Recovered/Not Resolved]
  - Amnesia [Not Recovered/Not Resolved]
  - Epigastric discomfort [Recovering/Resolving]
  - Heart rate increased [Recovering/Resolving]
  - Muscle spasms [Not Recovered/Not Resolved]
  - Abnormal dreams [Recovered/Resolved]
  - Blood pressure increased [Recovered/Resolved]
  - Faeces pale [Unknown]
  - Heart rate decreased [Not Recovered/Not Resolved]
  - Hepatic enzyme increased [Unknown]
  - Stress [Not Recovered/Not Resolved]

NARRATIVE: CASE EVENT DATE: 20131121
